FAERS Safety Report 16779480 (Version 3)
Quarter: 2020Q3

REPORT INFORMATION
  Report Type: Spontaneous
  Country: US (occurrence: US)
  Receive Date: 20190906
  Receipt Date: 20200824
  Transmission Date: 20201102
  Serious: No
  Sender: FDA-Public Use
  Company Number: US-GILEAD-2019-0426532

PATIENT
  Age: 39 Year
  Sex: Male
  Weight: 108.84 kg

DRUGS (13)
  1. NORVASC [Concomitant]
     Active Substance: AMLODIPINE BESYLATE
  2. NASONEX [Concomitant]
     Active Substance: MOMETASONE FUROATE
     Dosage: UNK
  3. HYDROCODONE [Concomitant]
     Active Substance: HYDROCODONE
     Dosage: UNK
  4. PENICILLIN [PENICILLIN NOS] [Concomitant]
     Active Substance: PENICILLIN
  5. AMOXICILLIN. [Concomitant]
     Active Substance: AMOXICILLIN
  6. IBUPROFEN. [Concomitant]
     Active Substance: IBUPROFEN
  7. ATRIPLA [Suspect]
     Active Substance: EFAVIRENZ\EMTRICITABINE\TENOFOVIR DISOPROXIL FUMARATE
     Indication: HIV INFECTION
     Dosage: UNK
     Route: 048
     Dates: start: 200608, end: 201909
  8. XANAX [Concomitant]
     Active Substance: ALPRAZOLAM
  9. GENVOYA [Concomitant]
     Active Substance: COBICISTAT\ELVITEGRAVIR\EMTRICITABINE\TENOFOVIR ALAFENAMIDE FUMARATE
     Indication: HIV INFECTION
     Dosage: UNK
     Dates: start: 2019
  10. BACTRIM [Concomitant]
     Active Substance: SULFAMETHOXAZOLE\TRIMETHOPRIM
     Dosage: UNK
     Dates: start: 2007, end: 2007
  11. ASPIRIN [ACETYLSALICYLIC ACID] [Concomitant]
     Active Substance: ASPIRIN
  12. NEXIUM I.V. [Concomitant]
     Active Substance: ESOMEPRAZOLE SODIUM
     Dosage: UNK
  13. VITAMIN D2 [Concomitant]
     Active Substance: ERGOCALCIFEROL
     Dosage: UNK

REACTIONS (12)
  - Anhedonia [Unknown]
  - Mastication disorder [Not Recovered/Not Resolved]
  - Bone density decreased [Not Recovered/Not Resolved]
  - Pain [Unknown]
  - Emotional distress [Unknown]
  - Eating disorder [Not Recovered/Not Resolved]
  - Bone loss [Unknown]
  - Tooth loss [Not Recovered/Not Resolved]
  - Tooth fracture [Unknown]
  - Bone density abnormal [Unknown]
  - Anxiety [Unknown]
  - Economic problem [Unknown]

NARRATIVE: CASE EVENT DATE: 201908
